FAERS Safety Report 13923026 (Version 3)
Quarter: 2017Q3

REPORT INFORMATION
  Report Type: Spontaneous
  Country: US (occurrence: US)
  Receive Date: 20170830
  Receipt Date: 20170919
  Transmission Date: 20171127
  Serious: Yes (Death, Hospitalization, Other)
  Sender: FDA-Public Use
  Company Number: US-AMGEN-USASP2017129937

PATIENT
  Age: 65 Year
  Sex: Female
  Weight: 67.29 kg

DRUGS (3)
  1. NEULASTA [Suspect]
     Active Substance: PEGFILGRASTIM
     Indication: BREAST CANCER METASTATIC
     Dosage: 6 MG, UNK
     Route: 058
     Dates: start: 20170810, end: 20170811
  2. CYCLOPHOSPHAMIDE. [Concomitant]
     Active Substance: CYCLOPHOSPHAMIDE
     Indication: PLASMA CELL LEUKAEMIA
     Dosage: 600 MG, ONE TIME DOSE
     Dates: start: 20170810, end: 20170810
  3. DOXORUBICIN [Concomitant]
     Active Substance: DOXORUBICIN
     Indication: PLASMA CELL LEUKAEMIA
     Dosage: 60 MG, ONE TIME DOSE
     Dates: start: 20170810, end: 20170810

REACTIONS (3)
  - Cardiac disorder [Fatal]
  - Bone pain [Fatal]
  - Sepsis [Fatal]

NARRATIVE: CASE EVENT DATE: 20170816
